FAERS Safety Report 9046939 (Version 1)
Quarter: 2013Q1

REPORT INFORMATION
  Report Type: Report from Study
  Country: CA (occurrence: CA)
  Receive Date: 20130204
  Receipt Date: 20130204
  Transmission Date: 20140127
  Serious: Yes (Hospitalization)
  Sender: FDA-Public Use
  Company Number: CA-JNJFOC-20130113809

PATIENT
  Age: 71 None
  Sex: Female
  Weight: 55.9 kg

DRUGS (12)
  1. REMICADE [Suspect]
     Indication: CROHN^S DISEASE
     Route: 042
     Dates: start: 20100214
  2. VITAMIN B COMPLEX [Concomitant]
     Route: 065
  3. ENTOCORT [Concomitant]
     Route: 065
  4. LOSEC [Concomitant]
     Route: 065
  5. OMEPRAZOLE [Concomitant]
     Route: 065
  6. AZATHIOPRINE [Concomitant]
     Route: 065
  7. CALCIUM [Concomitant]
     Route: 065
  8. VITAMIN D [Concomitant]
     Route: 065
  9. RHINOCORT [Concomitant]
     Route: 045
  10. FERROUS GLUCONATE [Concomitant]
     Route: 065
  11. BREWERS YEAST [Concomitant]
     Route: 065
  12. VITAMIN B12 [Concomitant]
     Route: 065

REACTIONS (2)
  - Abdominal pain [Recovered/Resolved]
  - Vomiting [Recovered/Resolved]
